FAERS Safety Report 13611431 (Version 1)
Quarter: 2017Q2

REPORT INFORMATION
  Report Type: Spontaneous
  Country: US (occurrence: US)
  Receive Date: 20170605
  Receipt Date: 20170605
  Transmission Date: 20170830
  Serious: No
  Sender: FDA-Public Use
  Company Number: US-PFIZER INC-2017240526

PATIENT
  Sex: Female

DRUGS (1)
  1. XELJANZ XR [Suspect]
     Active Substance: TOFACITINIB CITRATE
     Dosage: 11 MG, UNK

REACTIONS (18)
  - Fatigue [Unknown]
  - Raynaud^s phenomenon [Unknown]
  - Musculoskeletal stiffness [Unknown]
  - Oedema peripheral [Unknown]
  - Erythema [Unknown]
  - Dry eye [Unknown]
  - Arthralgia [Unknown]
  - Tenderness [Unknown]
  - Muscular weakness [Unknown]
  - Dyspnoea [Unknown]
  - Night sweats [Unknown]
  - Swelling [Unknown]
  - Chest pain [Unknown]
  - Weight increased [Unknown]
  - Dry mouth [Unknown]
  - Sleep disorder [Unknown]
  - Liver function test increased [Unknown]
  - Aldolase increased [Unknown]
